FAERS Safety Report 5884585-4 (Version None)
Quarter: 2008Q3

REPORT INFORMATION
  Report Type: 
  Country: None (occurrence: None)
  Receive Date: 20080915
  Receipt Date: 20080915
  Transmission Date: 20090109
  Serious: Yes (Other)
  Sender: FDA-Public Use
  Company Number: None

PATIENT
  Age: 65 Year
  Sex: Female
  Weight: 81.6475 kg

DRUGS (2)
  1. METOPROLOL SUCCINATE [Suspect]
     Indication: HEART RATE INCREASED
     Dosage: 50 MGS ONE DAILY PO
     Route: 048
     Dates: start: 20080725, end: 20080731
  2. METOPROLOL SUCCINATE [Suspect]
     Indication: HYPERTENSION
     Dosage: 50 MGS ONE DAILY PO
     Route: 048
     Dates: start: 20080725, end: 20080731

REACTIONS (2)
  - MIGRAINE [None]
  - VOMITING [None]
